FAERS Safety Report 7235245-9 (Version None)
Quarter: 2011Q1

REPORT INFORMATION
  Report Type: 
  Country: None (occurrence: None)
  Receive Date: 20110120
  Receipt Date: 20110117
  Transmission Date: 20110831
  Serious: No
  Sender: FDA-Public Use
  Company Number: US-JNJFOC-20110104730

PATIENT
  Age: 63 Year
  Sex: Female

DRUGS (4)
  1. FENTANYL-100 [Suspect]
     Indication: NEUROPATHY PERIPHERAL
     Dosage: NDC NUMBER: 0781-7244-55
     Route: 062
  2. FENTANYL-100 [Suspect]
     Indication: ARTHRITIS
     Dosage: NDC NUMBER: 0781-7244-55
     Route: 062
  3. FENTANYL-100 [Suspect]
     Indication: BACK PAIN
     Dosage: NDC NUMBER: 0781-7244-55
     Route: 062
  4. FENTANYL-100 [Suspect]
     Indication: CARPAL TUNNEL SYNDROME
     Dosage: NDC NUMBER: 0781-7244-55
     Route: 062

REACTIONS (3)
  - APPLICATION SITE PRURITUS [None]
  - DRUG ADMINISTERED AT INAPPROPRIATE SITE [None]
  - TREATMENT NONCOMPLIANCE [None]
